FAERS Safety Report 8358848-7 (Version None)
Quarter: 2012Q2

REPORT INFORMATION
  Report Type: 
  Country: None (occurrence: None)
  Receive Date: 20120515
  Receipt Date: 20120507
  Transmission Date: 20120825
  Serious: Yes (Hospitalization, Other)
  Sender: FDA-Public Use
  Company Number: US-AMGEN-USASP2012014144

PATIENT
  Age: 34 Year
  Sex: Female

DRUGS (5)
  1. ENBREL [Suspect]
     Indication: PSORIASIS
     Dosage: 50 MG, 2 TIMES/WK
     Dates: start: 20070201
  2. PRENATAL VITAMINS                  /02014401/ [Concomitant]
     Dosage: UNK
     Route: 048
  3. ENBREL [Suspect]
     Indication: PSORIATIC ARTHROPATHY
  4. VITAMIN D [Concomitant]
     Dosage: 2000 UNIT, QD
     Route: 048
  5. REMICADE [Concomitant]
     Dosage: UNK
     Route: 042
     Dates: start: 20111101, end: 20120105

REACTIONS (2)
  - LOWER RESPIRATORY TRACT INFECTION [None]
  - PROLONGED LABOUR [None]
